FAERS Safety Report 15598890 (Version 3)
Quarter: 2019Q1

REPORT INFORMATION
  Report Type: Spontaneous
  Country: US (occurrence: US)
  Receive Date: 20181108
  Receipt Date: 20190228
  Transmission Date: 20190417
  Serious: Yes (Other)
  Sender: FDA-Public Use
  Company Number: US-PFIZER INC-2018449791

PATIENT
  Age: 65 Year
  Sex: Male
  Weight: 71.21 kg

DRUGS (3)
  1. GABAPENTIN. [Suspect]
     Active Substance: GABAPENTIN
     Indication: NEUROPATHY PERIPHERAL
     Dosage: 100 MG, 3X/DAY
  2. GABAPENTIN. [Suspect]
     Active Substance: GABAPENTIN
     Dosage: 300 MG, 2X/DAY
  3. GABAPENTIN. [Suspect]
     Active Substance: GABAPENTIN
     Dosage: 300 MG, 3X/DAY

REACTIONS (7)
  - Constipation [Recovering/Resolving]
  - Skin burning sensation [Not Recovered/Not Resolved]
  - Paraesthesia [Unknown]
  - Intentional product use issue [Unknown]
  - Abdominal distension [Unknown]
  - Hot flush [Unknown]
  - Drug ineffective for unapproved indication [Unknown]
